FAERS Safety Report 22995585 (Version 2)
Quarter: 2023Q4

REPORT INFORMATION
  Report Type: Spontaneous
  Country: CN (occurrence: CN)
  Receive Date: 20230927
  Receipt Date: 20231013
  Transmission Date: 20240109
  Serious: Yes (Other)
  Sender: FDA-Public Use
  Company Number: CN-JNJFOC-20230948393

PATIENT

DRUGS (2)
  1. TOPAMAX [Suspect]
     Active Substance: TOPIRAMATE
     Indication: Epilepsy
     Route: 048
  2. OXCARBAZEPINE [Suspect]
     Active Substance: OXCARBAZEPINE
     Indication: Epilepsy
     Dosage: 8 ~ 10 MG/KG WAS GIVEN ORALLY, TAKEN IN 2 DIVIDED DOSES
     Route: 048

REACTIONS (5)
  - Altered state of consciousness [Unknown]
  - Somnolence [Unknown]
  - Dizziness [Unknown]
  - Rash [Unknown]
  - Drug ineffective [Unknown]
